FAERS Safety Report 16623985 (Version 4)
Quarter: 2025Q3

REPORT INFORMATION
  Report Type: Spontaneous
  Country: EU (occurrence: EU)
  Receive Date: 20190724
  Receipt Date: 20250709
  Transmission Date: 20251020
  Serious: Yes (Life-Threatening, Hospitalization, Other)
  Sender: AUROBINDO
  Company Number: EU-AUROBINDO-AUR-APL-2019-042761

PATIENT
  Age: 33 Year
  Sex: Female

DRUGS (10)
  1. METOPROLOL [Suspect]
     Active Substance: METOPROLOL
     Indication: Tachycardia
     Route: 042
  2. METOPROLOL [Suspect]
     Active Substance: METOPROLOL
     Indication: Blood pressure increased
  3. FUROSEMIDE [Suspect]
     Active Substance: FUROSEMIDE
     Indication: Dyspnoea
     Route: 065
  4. FUROSEMIDE [Suspect]
     Active Substance: FUROSEMIDE
     Indication: Pulmonary oedema
  5. NITROGLYCERIN [Suspect]
     Active Substance: NITROGLYCERIN
     Indication: Dyspnoea
     Route: 065
  6. NITROGLYCERIN [Suspect]
     Active Substance: NITROGLYCERIN
     Indication: Pulmonary oedema
  7. HEPARIN [Suspect]
     Active Substance: HEPARIN SODIUM
     Indication: Tachycardia
     Route: 041
  8. HEPARIN [Suspect]
     Active Substance: HEPARIN SODIUM
     Indication: Blood pressure increased
     Route: 065
  9. MORPHINE [Suspect]
     Active Substance: MORPHINE
     Indication: Dyspnoea
     Route: 065
  10. MORPHINE [Suspect]
     Active Substance: MORPHINE
     Indication: Pulmonary oedema

REACTIONS (8)
  - Left ventricular failure [Recovered/Resolved]
  - Therapeutic product effect incomplete [Unknown]
  - Cardiac arrest [Recovered/Resolved]
  - Pulmonary oedema [Recovering/Resolving]
  - Oxygen saturation decreased [Recovering/Resolving]
  - Blood pressure increased [Recovering/Resolving]
  - Left ventricular dysfunction [Recovered/Resolved]
  - Dyspnoea [Recovering/Resolving]
